FAERS Safety Report 6900045-3 (Version None)
Quarter: 2010Q3

REPORT INFORMATION
  Report Type: 
  Country: None (occurrence: None)
  Receive Date: 20100708
  Receipt Date: 20100130
  Transmission Date: 20110219
  Serious: Yes (Other)
  Sender: FDA-Public Use
  Company Number: 2010013267

PATIENT
  Age: 59 Year
  Sex: Male
  Weight: 76.2 kg

DRUGS (3)
  1. CHANTIX [Suspect]
     Indication: SMOKING CESSATION THERAPY
     Dosage: 1 MG, 2X/DAY, ORAL
     Route: 048
     Dates: start: 20100114
  2. PRAMIPEXOLE DIHYDROCHLORIDE [Suspect]
     Indication: RESTLESS LEGS SYNDROME
     Dosage: 0.25 MG, ORAL
     Route: 048
     Dates: start: 20100101
  3. PRAVASTATIN [Concomitant]

REACTIONS (3)
  - AGITATION [None]
  - INSOMNIA [None]
  - RESTLESS LEGS SYNDROME [None]
